FAERS Safety Report 7888529-5 (Version None)
Quarter: 2011Q4

REPORT INFORMATION
  Report Type: 
  Country: None (occurrence: None)
  Receive Date: 20111103
  Receipt Date: 20111027
  Transmission Date: 20120403
  Serious: Yes (Other)
  Sender: FDA-Public Use
  Company Number: JP-JNJFOC-20111012817

PATIENT
  Age: 84 Year
  Sex: Male

DRUGS (1)
  1. ITRACONAZOLE [Suspect]
     Indication: CANDIDIASIS
     Route: 065

REACTIONS (2)
  - CANDIDA ENDOPHTHALMITIS [None]
  - RENAL DISORDER [None]
